FAERS Safety Report 14173289 (Version 6)
Quarter: 2018Q2

REPORT INFORMATION
  Report Type: Report from Study
  Country: DE (occurrence: DE)
  Receive Date: 20171109
  Receipt Date: 20180625
  Transmission Date: 20180711
  Serious: Yes (Death, Hospitalization, Other)
  Sender: FDA-Public Use
  Company Number: DE-BRISTOL-MYERS SQUIBB COMPANY-BMS-2017-099367

PATIENT
  Age: 58 Year
  Sex: Male

DRUGS (5)
  1. CEFTRIAXONE DISODIUM [Concomitant]
     Active Substance: CEFTRIAXONE
     Indication: PRODUCT USED FOR UNKNOWN INDICATION
     Dosage: 2000 MG, UNK
     Route: 042
     Dates: start: 20170222
  2. NIVOLUMAB [Suspect]
     Active Substance: NIVOLUMAB
     Indication: MALIGNANT MELANOMA
     Dosage: 94.88 MG, Q3WK
     Route: 042
     Dates: start: 20171026, end: 20171130
  3. TRAMETINIB [Suspect]
     Active Substance: TRAMETINIB
     Indication: MALIGNANT MELANOMA
     Route: 065
  4. IPILIMUMAB [Suspect]
     Active Substance: IPILIMUMAB
     Indication: MALIGNANT MELANOMA
     Dosage: 293.39 MG, Q3WK
     Route: 042
     Dates: start: 20171026, end: 20171130
  5. DABRAFENIB [Suspect]
     Active Substance: DABRAFENIB
     Indication: MALIGNANT MELANOMA
     Route: 065

REACTIONS (12)
  - Vestibular disorder [Recovering/Resolving]
  - Formication [Recovering/Resolving]
  - Tumour haemorrhage [Unknown]
  - Deafness [Unknown]
  - Diarrhoea [Recovering/Resolving]
  - Metastases to central nervous system [Unknown]
  - Sepsis [Unknown]
  - General physical health deterioration [Fatal]
  - Visual impairment [Recovering/Resolving]
  - Condition aggravated [Unknown]
  - Malignant neoplasm progression [Fatal]
  - Asthenia [Recovering/Resolving]

NARRATIVE: CASE EVENT DATE: 20171127
